FAERS Safety Report 13821875 (Version 1)
Quarter: 2017Q3

REPORT INFORMATION
  Report Type: Spontaneous
  Country: US (occurrence: US)
  Receive Date: 20170801
  Receipt Date: 20170801
  Transmission Date: 20171127
  Serious: No
  Sender: FDA-Public Use
  Company Number: US-PFIZER INC-2017323902

PATIENT
  Age: 80 Year
  Sex: Male

DRUGS (2)
  1. ATORVASTATIN CALCIUM. [Suspect]
     Active Substance: ATORVASTATIN CALCIUM
     Indication: BLOOD CHOLESTEROL
     Dosage: 80 MG, UNK
  2. ATORVASTATIN CALCIUM. [Suspect]
     Active Substance: ATORVASTATIN CALCIUM
     Dosage: 40 MG, DAILY (80MG TABLETS, TAKES HALF OF A TABLET ONCE AT NIGHT)
     Dates: end: 20170401

REACTIONS (7)
  - Electrocardiogram abnormal [Unknown]
  - Liver disorder [Unknown]
  - Vomiting [Unknown]
  - Blood cholesterol decreased [Unknown]
  - Renal disorder [Unknown]
  - Malaise [Unknown]
  - Hypertonic bladder [Unknown]
